FAERS Safety Report 11543536 (Version 3)
Quarter: 2015Q4

REPORT INFORMATION
  Report Type: Report from Study
  Country: BR (occurrence: BR)
  Receive Date: 20150923
  Receipt Date: 20151028
  Transmission Date: 20160304
  Serious: No
  Sender: FDA-Public Use
  Company Number: PHHY2015BR115238

PATIENT
  Sex: Female
  Weight: 65 kg

DRUGS (5)
  1. ADDERA D3 [Concomitant]
     Active Substance: CHOLECALCIFEROL
     Indication: BONE DISORDER
     Dosage: 1 DF, QD
     Route: 048
  2. EZETIMIBE. [Concomitant]
     Active Substance: EZETIMIBE
     Indication: BLOOD CHOLESTEROL INCREASED
     Dosage: 1 DF, QD
     Route: 048
  3. ADDERA D3 [Concomitant]
     Active Substance: CHOLECALCIFEROL
     Indication: VITAMIN SUPPLEMENTATION
  4. EXJADE [Suspect]
     Active Substance: DEFERASIROX
     Indication: HEREDITARY HAEMOCHROMATOSIS
     Dosage: 1 DF, UNK
     Route: 048
  5. OSTEOFIX [Concomitant]
     Indication: BONE DISORDER
     Dosage: 1 DF, QD
     Route: 048

REACTIONS (1)
  - Blood cholesterol increased [Recovering/Resolving]
